FAERS Safety Report 21768032 (Version 2)
Quarter: 2022Q4

REPORT INFORMATION
  Report Type: Spontaneous
  Country: AR (occurrence: AR)
  Receive Date: 20221222
  Receipt Date: 20221226
  Transmission Date: 20230112
  Serious: Yes (Other)
  Sender: FDA-Public Use
  Company Number: AR-002147023-NVSC2022AR295555

PATIENT
  Sex: Male

DRUGS (5)
  1. CERITINIB [Suspect]
     Active Substance: CERITINIB
     Indication: Product used for unknown indication
     Dosage: 750 MG, QD (DAILY)
     Route: 065
     Dates: start: 20151217
  2. ZOLEDRONIC ACID [Suspect]
     Active Substance: ZOLEDRONIC ACID
     Indication: Product used for unknown indication
     Dosage: 90 MC, 28D
     Route: 065
     Dates: start: 20151217
  3. ALECTINIB [Suspect]
     Active Substance: ALECTINIB
     Indication: Product used for unknown indication
     Dosage: 1200 MG, QD
     Route: 048
     Dates: start: 20170922
  4. BRIGATINIB [Suspect]
     Active Substance: BRIGATINIB
     Indication: Product used for unknown indication
     Dosage: 90 MG FOR 7 DAYS
     Route: 065
     Dates: start: 202105
  5. BRIGATINIB [Suspect]
     Active Substance: BRIGATINIB
     Dosage: 180 MG, QD
     Route: 065

REACTIONS (7)
  - Optic neuritis [Unknown]
  - Hypertriglyceridaemia [Unknown]
  - Hypercholesterolaemia [Unknown]
  - Irritability [Unknown]
  - Weight increased [Unknown]
  - Muscle spasms [Unknown]
  - Diarrhoea [Unknown]
